FAERS Safety Report 6270604-2 (Version None)
Quarter: 2009Q3

REPORT INFORMATION
  Report Type: 
  Country: None (occurrence: None)
  Receive Date: 20090716
  Receipt Date: 20090702
  Transmission Date: 20100115
  Serious: Yes (Other)
  Sender: FDA-Public Use
  Company Number: JP-ROCHE-597749

PATIENT
  Sex: Female

DRUGS (8)
  1. PEGASYS [Suspect]
     Indication: HEPATITIS C
     Route: 058
     Dates: start: 20080507, end: 20080618
  2. PEGASYS [Suspect]
     Dosage: DECREASED DOSAGE
     Route: 058
     Dates: start: 20080702, end: 20081015
  3. PEGASYS [Suspect]
     Route: 058
     Dates: start: 20090401
  4. HALCION [Concomitant]
     Route: 048
     Dates: start: 20070627
  5. MYSLEE [Concomitant]
     Route: 048
     Dates: start: 20070808
  6. VITAMEDIN [Concomitant]
     Route: 048
     Dates: start: 20071212
  7. URSO 250 [Concomitant]
     Route: 048
     Dates: start: 20071212
  8. GLAKAY [Concomitant]
     Route: 048
     Dates: start: 20080312

REACTIONS (1)
  - VITH NERVE PARALYSIS [None]
